FAERS Safety Report 13445144 (Version 2)
Quarter: 2024Q1

REPORT INFORMATION
  Report Type: Spontaneous
  Country: CH (occurrence: CH)
  Receive Date: 20170414
  Receipt Date: 20240327
  Transmission Date: 20240410
  Serious: Yes (Hospitalization, Other)
  Sender: FDA-Public Use
  Company Number: None

PATIENT
  Age: 0 Year
  Sex: Male
  Weight: 2.2 kg

DRUGS (25)
  1. EMEND [Suspect]
     Active Substance: APREPITANT
     Indication: Prophylaxis of nausea and vomiting
     Dosage: 125 MG, UNK
     Route: 064
     Dates: start: 20160729
  2. EMEND [Suspect]
     Active Substance: APREPITANT
     Dosage: 80 MG, UNK
     Route: 064
     Dates: start: 20160730
  3. DOXORUBICIN [Suspect]
     Active Substance: DOXORUBICIN
     Indication: Hodgkin^s disease nodular sclerosis
     Dosage: 25 MG/M2, CYCLE 1
     Route: 064
     Dates: start: 20160729, end: 20160812
  4. DOXORUBICIN [Suspect]
     Active Substance: DOXORUBICIN
     Dosage: 25 MG/M2, CYCLE 2
     Route: 064
     Dates: start: 20160826, end: 20160909
  5. DOXORUBICIN [Suspect]
     Active Substance: DOXORUBICIN
     Dosage: 25 MG/M2, CYCLE 3
     Route: 064
     Dates: start: 20160923, end: 20161017
  6. NEUPOGEN [Suspect]
     Active Substance: FILGRASTIM
     Indication: Agranulocytosis
     Dosage: 30 MILLION IU (1 SINGLE INJECTION)
     Route: 064
     Dates: start: 201608, end: 201608
  7. BLEOMYCIN SULFATE [Suspect]
     Active Substance: BLEOMYCIN SULFATE
     Indication: Hodgkin^s disease nodular sclerosis
     Dosage: 10000 IU/M2, CYCLE 1
     Route: 064
     Dates: start: 20160729, end: 20160812
  8. BLEOMYCIN SULFATE [Suspect]
     Active Substance: BLEOMYCIN SULFATE
     Dosage: 10000 IU/M2, (CYCLE 2)
     Route: 064
     Dates: start: 20160826, end: 20160909
  9. BLEOMYCIN SULFATE [Suspect]
     Active Substance: BLEOMYCIN SULFATE
     Dosage: 10000 IU/M2, (CYCLE 3)
     Route: 064
     Dates: start: 20160923
  10. VINBLASTINE SULFATE [Suspect]
     Active Substance: VINBLASTINE SULFATE
     Indication: Hodgkin^s disease nodular sclerosis
     Dosage: 6 MG/M2  (CYCLE 1)
     Route: 064
     Dates: start: 20160729, end: 20160812
  11. VINBLASTINE SULFATE [Suspect]
     Active Substance: VINBLASTINE SULFATE
     Dosage: 6 MG/M2  (CYCLE 2)
     Route: 064
     Dates: start: 20160826, end: 20160909
  12. VINBLASTINE SULFATE [Suspect]
     Active Substance: VINBLASTINE SULFATE
     Dosage: 6 MG/M2  (CYCLE 3)
     Route: 064
     Dates: start: 20160923, end: 20161017
  13. DACARBAZINE [Suspect]
     Active Substance: DACARBAZINE
     Indication: Hodgkin^s disease nodular sclerosis
     Dosage: 375 MG/M2,  (CYCLE 1)
     Route: 064
     Dates: start: 20160729, end: 20160812
  14. DACARBAZINE [Suspect]
     Active Substance: DACARBAZINE
     Dosage: 375 MG/M2,  (CYCLE 2)
     Route: 064
     Dates: start: 20160826, end: 20160909
  15. DACARBAZINE [Suspect]
     Active Substance: DACARBAZINE
     Dosage: 375 MG/M2,  (CYCLE 3)
     Route: 064
     Dates: start: 20160923
  16. ZOFRAN [Suspect]
     Active Substance: ONDANSETRON HYDROCHLORIDE
     Indication: Prophylaxis of nausea and vomiting
     Dosage: 8 MG (CYCLE 1), UNK
     Route: 064
     Dates: start: 20160729, end: 20160812
  17. ZOFRAN [Suspect]
     Active Substance: ONDANSETRON HYDROCHLORIDE
     Dosage: 8 MG, CYCLE 2
     Route: 064
     Dates: start: 20160826, end: 20160909
  18. ZOFRAN [Suspect]
     Active Substance: ONDANSETRON HYDROCHLORIDE
     Dosage: 8 MG, CYCLE 3
     Route: 064
     Dates: start: 20160923, end: 20161017
  19. SOLU-MEDROL [Suspect]
     Active Substance: METHYLPREDNISOLONE SODIUM SUCCINATE
     Indication: Prophylaxis of nausea and vomiting
     Dosage: 125 MG (CYCLE 1), UNK
     Route: 064
     Dates: start: 20160729, end: 20160812
  20. SOLU-MEDROL [Suspect]
     Active Substance: METHYLPREDNISOLONE SODIUM SUCCINATE
     Dosage: 125 MG (CYCLE 2), UNK
     Route: 064
     Dates: start: 20160826, end: 20160909
  21. SOLU-MEDROL [Suspect]
     Active Substance: METHYLPREDNISOLONE SODIUM SUCCINATE
     Dosage: 125 MG (CYCLE 3), UNK
     Route: 064
     Dates: start: 20160923, end: 20161017
  22. EUTHYROX [Concomitant]
     Active Substance: LEVOTHYROXINE SODIUM
     Indication: Hypothyroidism
     Dosage: 25 MICROGRAM, QD
     Route: 064
     Dates: start: 20160624
  23. FISH OIL\MINERALS\VITAMINS [Concomitant]
     Active Substance: FISH OIL\MINERALS\VITAMINS
     Indication: Nutritional supplementation
     Dosage: 1 DF, QD
     Route: 064
     Dates: start: 2016, end: 2016
  24. FOLIC ACID [Concomitant]
     Active Substance: FOLIC ACID
     Indication: Anaemia prophylaxis
     Dosage: 5 MG, QD
     Route: 064
     Dates: start: 201609, end: 201611
  25. CYANOCOBALAMIN [Concomitant]
     Active Substance: CYANOCOBALAMIN
     Indication: Anaemia prophylaxis
     Dosage: UNK
     Route: 064
     Dates: start: 201609, end: 201611

REACTIONS (4)
  - Small for dates baby [Recovering/Resolving]
  - Neonatal respiratory distress syndrome [Recovered/Resolved]
  - Hyperbilirubinaemia neonatal [Recovered/Resolved]
  - Exposure during pregnancy [Recovered/Resolved]

NARRATIVE: CASE EVENT DATE: 20160729
